FAERS Safety Report 8041120-2 (Version None)
Quarter: 2012Q1

REPORT INFORMATION
  Report Type: 
  Country: None (occurrence: None)
  Receive Date: 20120109
  Receipt Date: 20111228
  Transmission Date: 20120608
  Serious: Yes (Other)
  Sender: FDA-Public Use
  Company Number: 1000025959

PATIENT
  Age: 33 Year
  Sex: Female

DRUGS (3)
  1. ONDANSETRON (ONDANSETRON) (TABLETS) (ONDANSETRON) [Concomitant]
  2. LEXAPRO [Suspect]
     Dosage: 30 MG (30 MG,1 IN 1 D)
  3. PHENERGAN (PROMETHAZINE) (TABLETS) (PROMETHAZINE) [Concomitant]

REACTIONS (4)
  - PREMATURE DELIVERY [None]
  - PREGNANCY [None]
  - MATERNAL DRUGS AFFECTING FOETUS [None]
  - OVERDOSE [None]
